FAERS Safety Report 5503118-5 (Version None)
Quarter: 2007Q4

REPORT INFORMATION
  Report Type: 
  Country: None (occurrence: None)
  Receive Date: 20071031
  Receipt Date: 20071030
  Transmission Date: 20080405
  Serious: Yes (Death, Hospitalization)
  Sender: FDA-Public Use
  Company Number: JP-SANOFI-SYNTHELABO-F01200701385

PATIENT
  Sex: Female

DRUGS (11)
  1. DECADRON [Concomitant]
     Route: 048
  2. CHINESE HERBAL MEDICINE [Concomitant]
     Dosage: 2.5 G
     Route: 048
  3. NAUZELIN [Concomitant]
     Route: 048
  4. SELBEX [Concomitant]
     Dosage: 3 DF
     Route: 048
  5. METHYCOBAL [Concomitant]
     Dosage: 3 DF
     Route: 048
  6. NAPROXEN [Concomitant]
     Dosage: 6 DF
     Route: 048
  7. LANSOPRAZOLE [Concomitant]
     Route: 048
  8. ISOVORIN [Suspect]
     Route: 042
     Dates: start: 20070905, end: 20070905
  9. FLUOROURACIL [Suspect]
     Dosage: 400 MG/M2 IV BOLUS THEN 600 MG/M2 CONTINUOUS INFUSION OVER 2 DAYS
     Route: 042
     Dates: start: 20070905, end: 20070907
  10. BEVACIZUMAB [Suspect]
     Route: 042
     Dates: start: 20070905, end: 20070905
  11. OXALIPLATIN [Suspect]
     Indication: COLON CANCER RECURRENT
     Route: 042
     Dates: start: 20070905, end: 20070905

REACTIONS (2)
  - ACUTE PULMONARY OEDEMA [None]
  - THROMBOCYTOPENIA [None]
